FAERS Safety Report 9000269 (Version 2)
Quarter: 2013Q1

REPORT INFORMATION
  Report Type: Spontaneous
  Country: FR (occurrence: FR)
  Receive Date: 20130106
  Receipt Date: 20130129
  Transmission Date: 20140127
  Serious: Yes (Other)
  Sender: FDA-Public Use
  Company Number: FR-JNJFOC-20130101733

PATIENT
  Age: 85 Year
  Sex: Male
  Weight: 93 kg

DRUGS (7)
  1. IXPRIM [Suspect]
     Indication: SCIATICA
     Route: 048
  2. IXPRIM [Suspect]
     Indication: SCIATICA
     Route: 048
     Dates: start: 20121221, end: 20121222
  3. VOLTARENE [Concomitant]
     Indication: SCIATICA
     Route: 048
     Dates: start: 20121221, end: 20121224
  4. HYZAAR [Concomitant]
     Indication: HYPERTENSION
     Route: 048
     Dates: end: 20121224
  5. IPERTEN [Concomitant]
     Indication: HYPERTENSION
     Route: 048
     Dates: end: 20121224
  6. CORDARONE [Concomitant]
     Indication: ATRIAL FLUTTER
     Route: 048
     Dates: end: 20121224
  7. TRIVASTAL [Concomitant]
     Indication: HYPERTENSION
     Route: 065

REACTIONS (3)
  - Syncope [Recovered/Resolved]
  - Fall [Recovered/Resolved]
  - Hypotension [Recovered/Resolved]
